FAERS Safety Report 15093671 (Version 1)
Quarter: 2018Q2

REPORT INFORMATION
  Report Type: Spontaneous
  Country: US (occurrence: US)
  Receive Date: 20180629
  Receipt Date: 20180629
  Transmission Date: 20180711
  Serious: Yes (Death)
  Sender: FDA-Public Use
  Company Number: US-BAUSCH-BL-2018-017973

PATIENT
  Sex: Male
  Weight: 117.13 kg

DRUGS (2)
  1. XIFAXAN [Suspect]
     Active Substance: RIFAXIMIN
     Indication: LIVER DISORDER
  2. XIFAXAN [Suspect]
     Active Substance: RIFAXIMIN
     Indication: AMMONIA INCREASED
     Dosage: ABOUT A YEAR AND A HALF AGO
     Route: 048

REACTIONS (3)
  - Ill-defined disorder [Fatal]
  - Intestinal obstruction [Fatal]
  - Dehydration [Fatal]
